FAERS Safety Report 17860451 (Version 2)
Quarter: 2020Q2

REPORT INFORMATION
  Report Type: Spontaneous
  Country: US (occurrence: US)
  Receive Date: 20200604
  Receipt Date: 20200610
  Transmission Date: 20200714
  Serious: Yes (Other)
  Sender: FDA-Public Use
  Company Number: US-MYLANLABS-2020M1054318

PATIENT
  Sex: Male
  Weight: 1.2 kg

DRUGS (3)
  1. AMIODARONE [Suspect]
     Active Substance: AMIODARONE
     Indication: TACHYCARDIA FOETAL
     Route: 064
  2. FLECAINIDE [Suspect]
     Active Substance: FLECAINIDE
     Indication: TACHYCARDIA FOETAL
     Dosage: INITIALLY AS MONOTHERAPY
     Route: 064
  3. FLECAINIDE [Suspect]
     Active Substance: FLECAINIDE
     Dosage: IN COMBINATION WITH SOTALOL
     Route: 064

REACTIONS (2)
  - Treatment failure [Unknown]
  - Foetal exposure during pregnancy [Recovered/Resolved]
